FAERS Safety Report 9686652 (Version 1)
Quarter: 2013Q4

REPORT INFORMATION
  Report Type: Spontaneous
  Country: NO (occurrence: NO)
  Receive Date: 20131113
  Receipt Date: 20131113
  Transmission Date: 20140711
  Serious: Yes (Other)
  Sender: FDA-Public Use
  Company Number: CHNY2013NO002473

PATIENT
  Age: 38 Year
  Sex: Female

DRUGS (2)
  1. OTRIVIN [Suspect]
  2. NASONEX [Concomitant]

REACTIONS (1)
  - Drug dependence [Unknown]
